FAERS Safety Report 6724396-0 (Version None)
Quarter: 2010Q2

REPORT INFORMATION
  Report Type: 
  Country: None (occurrence: None)
  Receive Date: 20100513
  Receipt Date: 20100504
  Transmission Date: 20101027
  Serious: Yes (Hospitalization, Other)
  Sender: FDA-Public Use
  Company Number: PHHY2010GB15589

PATIENT
  Age: 31 Year
  Sex: Female

DRUGS (1)
  1. NEORAL [Suspect]
     Indication: PSORIASIS
     Dosage: 100 MG, BID

REACTIONS (3)
  - ACCIDENT [None]
  - BONE GRAFT [None]
  - WOUND [None]
